FAERS Safety Report 21073598 (Version 1)
Quarter: 2022Q3

REPORT INFORMATION
  Report Type: Spontaneous
  Country: ES (occurrence: ES)
  Receive Date: 20220713
  Receipt Date: 20220713
  Transmission Date: 20221027
  Serious: Yes (Hospitalization, Other)
  Sender: FDA-Public Use
  Company Number: ES-AEMPS-1212011

PATIENT
  Age: 89 Year
  Sex: Female
  Weight: 52 kg

DRUGS (1)
  1. FUROSEMIDE [Suspect]
     Active Substance: FUROSEMIDE
     Indication: Pleural effusion
     Dosage: 40 MILLIGRAM, ONCE A DAY
     Route: 048
     Dates: start: 20220615, end: 20220619

REACTIONS (3)
  - Acute kidney injury [Recovering/Resolving]
  - Dehydration [Recovering/Resolving]
  - Metabolic alkalosis [Recovering/Resolving]

NARRATIVE: CASE EVENT DATE: 20220619
